FAERS Safety Report 7138590-0 (Version None)
Quarter: 2010Q4

REPORT INFORMATION
  Report Type: 
  Country: None (occurrence: None)
  Receive Date: 20101206
  Receipt Date: 20101130
  Transmission Date: 20110411
  Serious: Yes (Life-Threatening, Hospitalization)
  Sender: FDA-Public Use
  Company Number: FR-PFIZER INC-2010163945

PATIENT
  Age: 82 Year
  Sex: Male

DRUGS (10)
  1. HYDROXYZINE HCL [Suspect]
     Dosage: 25 MG, 100 MG/2ML INJECTION
     Route: 042
     Dates: start: 20100918
  2. TERCIAN [Suspect]
     Indication: AGITATION
     Dosage: 12.5 MG, UNK
     Route: 030
     Dates: start: 20100918, end: 20100921
  3. KARDEGIC [Concomitant]
     Dosage: 300 MG, UNK
  4. TAHOR [Concomitant]
     Dosage: 100 MG, UNK
  5. TENORMIN [Concomitant]
     Dosage: 10 MG, UNK
  6. ZESTRIL [Concomitant]
     Dosage: 5 MG, UNK
  7. PERMIXON [Concomitant]
     Dosage: 160 MG, UNK
  8. SPIRIVA [Concomitant]
     Dosage: 1 DF, 1X/DAY
  9. AMAREL [Concomitant]
     Dosage: 1 DF, 1X/DAY
     Dates: end: 20100921
  10. SINGULAIR ^DIECKMANN^ [Concomitant]
     Dosage: 1 DF, 1X/DAY

REACTIONS (4)
  - ACUTE RESPIRATORY FAILURE [None]
  - CEREBROVASCULAR ACCIDENT [None]
  - DISTURBANCE IN ATTENTION [None]
  - SOMNOLENCE [None]
